FAERS Safety Report 6864056-9 (Version None)
Quarter: 2010Q3

REPORT INFORMATION
  Report Type: 
  Country: None (occurrence: None)
  Receive Date: 20100721
  Receipt Date: 20100713
  Transmission Date: 20110219
  Serious: Yes (Hospitalization)
  Sender: FDA-Public Use
  Company Number: DE-AMGEN-QUU424533

PATIENT
  Age: 60 Year
  Sex: Female

DRUGS (3)
  1. ENBREL [Suspect]
     Indication: RHEUMATOID ARTHRITIS
     Route: 058
     Dates: start: 20000817
  2. OMEPRAZOLE [Concomitant]
     Dosage: UNKNOWN
  3. DICLOFENAC [Concomitant]
     Dosage: 50MG (FREQUENCY UNKNOWN)

REACTIONS (1)
  - MYOCARDIAL INFARCTION [None]
